FAERS Safety Report 9985578 (Version 1)
Quarter: 2014Q1

REPORT INFORMATION
  Report Type: Spontaneous
  Country: US (occurrence: US)
  Receive Date: 20140307
  Receipt Date: 20140307
  Transmission Date: 20141002
  Serious: No
  Sender: FDA-Public Use
  Company Number: 2014SP000639

PATIENT
  Age: 27 Year
  Sex: Female
  Weight: 63 kg

DRUGS (5)
  1. LATUDA [Suspect]
     Indication: BIPOLAR I DISORDER
     Route: 048
     Dates: start: 20140214
  2. LATUDA [Suspect]
     Indication: BIPOLAR I DISORDER
     Route: 048
     Dates: start: 20140209, end: 20140214
  3. LAMICTAL [Concomitant]
     Route: 048
  4. TRAZODONE [Concomitant]
     Route: 048
  5. VALTREX [Concomitant]
     Indication: HERPES VIRUS INFECTION

REACTIONS (2)
  - Pruritus [Not Recovered/Not Resolved]
  - Somnolence [Unknown]
